FAERS Safety Report 6922778-5 (Version None)
Quarter: 2010Q3

REPORT INFORMATION
  Report Type: 
  Country: None (occurrence: None)
  Receive Date: 20100813
  Receipt Date: 20100813
  Transmission Date: 20110219
  Serious: Yes (Death)
  Sender: FDA-Public Use
  Company Number: None

PATIENT
  Age: 30 Year
  Sex: Female

DRUGS (2)
  1. SODIUM POLYSTYRENE SULFONATE [Suspect]
     Indication: HYPERKALAEMIA
     Dosage: 30G PO ; 90G -60 + 30- PO
     Route: 048
     Dates: start: 20060928, end: 20060928
  2. SODIUM POLYSTYRENE SULFONATE [Suspect]
     Indication: HYPERKALAEMIA
     Dosage: 30G PO ; 90G -60 + 30- PO
     Route: 048
     Dates: start: 20061112, end: 20061113

REACTIONS (4)
  - GASTROINTESTINAL NECROSIS [None]
  - INTESTINAL ISCHAEMIA [None]
  - NECROTISING FASCIITIS [None]
  - SEPSIS [None]
